FAERS Safety Report 9160712 (Version 1)
Quarter: 2013Q1

REPORT INFORMATION
  Report Type: Spontaneous
  Country: OM (occurrence: OM)
  Receive Date: 20130313
  Receipt Date: 20130313
  Transmission Date: 20140127
  Serious: Yes (Other)
  Sender: FDA-Public Use
  Company Number: OM-PFIZER INC-2013081632

PATIENT
  Age: 5 Year
  Sex: Male

DRUGS (3)
  1. VANCOMYCIN HCL [Suspect]
     Indication: CELLULITIS
     Dosage: UNK
  2. PIPERACILLIN/TAZOBACTAM [Concomitant]
     Indication: FEBRILE NEUTROPENIA
     Dosage: UNK
  3. GENTAMYCIN [Concomitant]
     Indication: FEBRILE NEUTROPENIA
     Dosage: UNK

REACTIONS (2)
  - Myopathy [Recovering/Resolving]
  - Red man syndrome [Recovering/Resolving]
